FAERS Safety Report 9118322 (Version 1)
Quarter: 2013Q1

REPORT INFORMATION
  Report Type: Spontaneous
  Country: JP (occurrence: None)
  Receive Date: 20130128
  Receipt Date: 20130128
  Transmission Date: 20140127
  Serious: Yes (Other)
  Sender: FDA-Public Use
  Company Number: 2013PL000021

PATIENT
  Age: 54 Year
  Sex: Male

DRUGS (14)
  1. ALLOPURINOL [Suspect]
     Indication: PRODUCT USED FOR UNKNOWN INDICATION
     Route: 048
  2. ARANESP (DARBEPOETIN ALFA) [Suspect]
     Indication: NEPHROGENIC ANAEMIA
     Dosage: 80 MUG; QK; IV?11/--/2009  -
     Route: 042
     Dates: start: 200911
  3. PARIET [Suspect]
     Indication: PRODUCT USED FOR UNKNOWN INDICATION
     Route: 048
  4. NICHISTATE [Suspect]
     Indication: PRODUCT USED FOR UNKNOWN INDICATION
     Route: 048
  5. REGPARA [Concomitant]
  6. ASPARA-CA [Concomitant]
  7. LUPRAC [Concomitant]
  8. KALLIKREIN [Concomitant]
  9. PLATIBIT [Concomitant]
  10. SELBEX [Concomitant]
  11. OLMETEC [Concomitant]
  12. RENAGEL / 01459901 / [Concomitant]
  13. FOSRENOL [Concomitant]
  14. CALTAN [Concomitant]

REACTIONS (2)
  - Colon cancer [None]
  - Aplasia pure red cell [None]
